FAERS Safety Report 7098391-9 (Version None)
Quarter: 2010Q4

REPORT INFORMATION
  Report Type: 
  Country: None (occurrence: None)
  Receive Date: 20101112
  Receipt Date: 20101103
  Transmission Date: 20110411
  Serious: No
  Sender: FDA-Public Use
  Company Number: US-PFIZER INC-2005162103

PATIENT
  Sex: Male

DRUGS (7)
  1. CADUET [Suspect]
     Dosage: 10MG/40MG
     Route: 065
     Dates: start: 20050101
  2. ACEON [Suspect]
     Dosage: 8 MG, 2X/DAY
     Route: 065
     Dates: start: 20050101
  3. GLIPIZIDE [Concomitant]
     Dosage: 10 MG, 1X/DAY
     Route: 065
  4. PERGOLIDE MESYLATE [Concomitant]
     Dosage: 0.25 MG, HALF A TAB DAILY
     Route: 065
  5. ACETYLSALICYLIC ACID [Concomitant]
     Dosage: 81 MG, 2 TABS DAILY
     Route: 065
  6. INDAPAMIDE [Concomitant]
     Dates: start: 20050101
  7. ZETIA [Concomitant]
     Dates: start: 20050101

REACTIONS (1)
  - DIZZINESS [None]
